FAERS Safety Report 8383204-5 (Version None)
Quarter: 2012Q2

REPORT INFORMATION
  Report Type: 
  Country: None (occurrence: None)
  Receive Date: 20120524
  Receipt Date: 20120515
  Transmission Date: 20120825
  Serious: Yes (Hospitalization)
  Sender: FDA-Public Use
  Company Number: US-BRISTOL-MYERS SQUIBB COMPANY-16542169

PATIENT
  Age: 49 Year
  Sex: Male
  Weight: 75 kg

DRUGS (3)
  1. PREDNISONE TAB [Suspect]
     Dosage: TABLET
  2. VICODIN [Suspect]
     Dosage: 1 DF = 5-500MG, Q4-6 HRS
  3. IPILIMUMAB [Suspect]
     Indication: MALIGNANT MELANOMA
     Dosage: 30-MAR-2012: LAST DOSE
     Route: 042
     Dates: start: 20120127, end: 20120412

REACTIONS (7)
  - NAUSEA [None]
  - DEHYDRATION [None]
  - HEADACHE [None]
  - DECREASED APPETITE [None]
  - HYPOTENSION [None]
  - BACK PAIN [None]
  - HYPOPHYSITIS [None]
